FAERS Safety Report 4559703-0 (Version None)
Quarter: 2005Q1

REPORT INFORMATION
  Report Type: 
  Country: None (occurrence: None)
  Receive Date: 20050114
  Receipt Date: 20040709
  Transmission Date: 20050727
  Serious: Yes (Life-Threatening, Hospitalization)
  Sender: FDA-Public Use
  Company Number: FEI2004-0690

PATIENT
  Age: 33 Year
  Sex: Female
  Weight: 70.0807 kg

DRUGS (1)
  1. INTRAUTERINE COPPER CONTRACEPTIVE [Suspect]
     Indication: CONTRACEPTION
     Dosage: INTRA-UTERINE
     Route: 015
     Dates: start: 20010104, end: 20040630

REACTIONS (2)
  - ECTOPIC PREGNANCY [None]
  - INTRA-UTERINE CONTRACEPTIVE DEVICE EXPELLED [None]
